FAERS Safety Report 24362160 (Version 2)
Quarter: 2024Q4

REPORT INFORMATION
  Report Type: Spontaneous
  Country: AU (occurrence: AU)
  Receive Date: 20240925
  Receipt Date: 20241221
  Transmission Date: 20250114
  Serious: Yes (Other)
  Sender: BOEHRINGER INGELHEIM
  Company Number: AU-BoehringerIngelheim-2024-BI-051847

PATIENT
  Age: 58 Year
  Sex: Male

DRUGS (23)
  1. TELMISARTAN [Suspect]
     Active Substance: TELMISARTAN
     Indication: Hypertension
     Route: 048
     Dates: start: 2018
  2. PROCHLORPERAZINE [Suspect]
     Active Substance: PROCHLORPERAZINE
     Indication: Nausea
     Route: 048
     Dates: start: 2022
  3. ONDANSETRON [Suspect]
     Active Substance: ONDANSETRON
     Indication: Nausea
     Dates: start: 2023
  4. DAPAGLIFLOZIN [Suspect]
     Active Substance: DAPAGLIFLOZIN
     Indication: Type 2 diabetes mellitus
     Dates: start: 2023
  5. EMTRICITABINE\TENOFOVIR [Suspect]
     Active Substance: EMTRICITABINE\TENOFOVIR
     Indication: Prophylaxis against HIV infection
     Dosage: 2023 (7 MONTHS BEFORE CURRENT?PRESENTATION)
     Dates: start: 2023
  6. BENSERAZIDE\LEVODOPA [Suspect]
     Active Substance: BENSERAZIDE\LEVODOPA
     Indication: Parkinsonism
     Dosage: 100+25 MG ORALLY
     Route: 048
     Dates: start: 2021
  7. LEVODOPA [Suspect]
     Active Substance: LEVODOPA
     Indication: Prophylaxis against HIV infection
     Dosage: 2023 (7 MONTHS BEFORE CURRENT?PRESENTATION)
     Dates: start: 2023
  8. TIOTROPIUM [Concomitant]
     Active Substance: TIOTROPIUM
     Indication: Chronic obstructive pulmonary disease
     Route: 055
     Dates: start: 2018
  9. linagliptin+metformin [Concomitant]
     Indication: Type 2 diabetes mellitus
     Dosage: 2.5 MG+1 G
     Dates: start: 2018
  10. ENTECAVIR [Concomitant]
     Active Substance: ENTECAVIR
     Indication: Chronic hepatitis B
     Route: 048
     Dates: start: 2022
  11. TEMAZEPAM [Concomitant]
     Active Substance: TEMAZEPAM
     Indication: Chronic hepatitis B
     Dosage: 10 MG AT NIGHT AND 10 MG AS REQUIRED
     Route: 048
     Dates: start: 2022
  12. QUETIAPINE [Concomitant]
     Active Substance: QUETIAPINE
     Indication: Parkinsonism
     Dosage: (MODIFIED RELEASE)
     Route: 048
     Dates: start: 2018
  13. VORTIOXETINE [Concomitant]
     Active Substance: VORTIOXETINE
     Indication: Parkinsonism
     Dosage: (MODIFIED RELEASE)
     Route: 048
     Dates: start: 2018
  14. INSULIN GLARGINE [Concomitant]
     Active Substance: INSULIN GLARGINE
     Indication: Type 2 diabetes mellitus
     Dosage: 2.5 MG+1 G UNIT DOSE: 30 IU
  15. ACETAMINOPHEN [Concomitant]
     Active Substance: ACETAMINOPHEN
     Indication: Pain
     Route: 048
     Dates: start: 2018
  16. ACETAMINOPHEN [Concomitant]
     Active Substance: ACETAMINOPHEN
     Indication: Cervical spinal stenosis
  17. ACETAMINOPHEN [Concomitant]
     Active Substance: ACETAMINOPHEN
     Indication: Spinal osteoarthritis
  18. DIAZEPAM [Concomitant]
     Active Substance: DIAZEPAM
     Indication: Anxiety
     Route: 048
     Dates: start: 2018
  19. BUDESONIDE\FORMOTEROL [Concomitant]
     Active Substance: BUDESONIDE\FORMOTEROL
     Indication: Chronic obstructive pulmonary disease
     Dosage: 400+12 MICROGRAMS INHALED
     Route: 055
     Dates: start: 2018
  20. ALBUTEROL [Concomitant]
     Active Substance: ALBUTEROL
     Indication: Chronic obstructive pulmonary disease
     Dosage: 200 MICROGRAMS INHALED UP TO 4 TIMES DAILY?AS REQUIRED
     Route: 055
  21. ATORVASTATIN [Concomitant]
     Active Substance: ATORVASTATIN
     Indication: Hypercholesterolaemia
     Dates: start: 2018
  22. FENOFIBRATE [Concomitant]
     Active Substance: FENOFIBRATE
     Indication: Hypercholesterolaemia
     Route: 048
     Dates: start: 2018
  23. LEVOTHYROXINE [Concomitant]
     Active Substance: LEVOTHYROXINE
     Indication: Thyroid disorder
     Dosage: LEVOTHYROXINE 100 MICROGRAMS DAILY MONDAY TO FRIDAY,?AND 150 MICROGRAMS DAILY SATURDAY AND SUNDAY
     Dates: start: 2018

REACTIONS (5)
  - Acute kidney injury [Recovered/Resolved]
  - Starvation ketoacidosis [Recovering/Resolving]
  - Constipation [Unknown]
  - Dehydration [Unknown]
  - Nephropathy toxic [Unknown]
